FAERS Safety Report 8400566-0 (Version None)
Quarter: 2012Q2

REPORT INFORMATION
  Report Type: 
  Country: None (occurrence: None)
  Receive Date: 20120531
  Receipt Date: 20120528
  Transmission Date: 20120825
  Serious: Yes (Hospitalization, Other)
  Sender: FDA-Public Use
  Company Number: JP-PFIZER INC-2012061598

PATIENT
  Age: 85 Year
  Sex: Male

DRUGS (12)
  1. LIMARMONE [Concomitant]
     Indication: LUMBAR SPINAL STENOSIS
     Dosage: 5 UG, 3X/DAY
     Route: 048
     Dates: start: 20060730
  2. LYRICA [Suspect]
     Indication: ANALGESIC THERAPY
     Dosage: 75 MG, 2X/DAY
     Route: 048
     Dates: start: 20110818
  3. VITAMIN B12 [Concomitant]
     Indication: HYPOAESTHESIA
     Dosage: 0.5 MG, 3X/DAY
     Route: 048
     Dates: start: 20060730
  4. DEPAS [Concomitant]
     Indication: SLEEP DISORDER
     Dosage: 0.5 MG, 1X/DAY
     Route: 048
     Dates: start: 20081118
  5. ALPROSTADIL [Suspect]
     Indication: ARTERIAL OCCLUSIVE DISEASE
     Dosage: 5 UG, 1X/DAY
     Route: 041
     Dates: start: 20120112, end: 20120113
  6. VOLTAREN [Concomitant]
     Indication: ANALGESIC THERAPY
     Dosage: 25 MG, AS NEEDED
     Route: 048
     Dates: start: 20111029
  7. EKSALB [Concomitant]
     Indication: CHILLBLAINS
     Dosage: UNK, ONCE A DAY
     Route: 062
     Dates: start: 20120112, end: 20120327
  8. JUVELA NICOTINATE [Concomitant]
     Indication: PROMOTION OF PERIPHERAL CIRCULATION
     Dosage: 200 MG, 3X/DAY
     Route: 048
     Dates: start: 20090113
  9. VOLTAREN [Concomitant]
     Dosage: 2-3 TIMES/DAY
     Route: 062
     Dates: start: 20100621
  10. SHAKUYAKU-KANZO-TO [Concomitant]
     Indication: MUSCLE SPASMS
     Dosage: 2.5 G, 3X/DAY
     Route: 048
     Dates: start: 20090120
  11. NABOAL [Concomitant]
     Indication: ANALGESIC THERAPY
     Dosage: 1 DF, 1X/DAY
     Route: 062
     Dates: start: 20100313
  12. HIRUDOID [Concomitant]
     Indication: CHILLBLAINS
     Dosage: UNK, ONCE A DAY
     Route: 062
     Dates: start: 20110304

REACTIONS (1)
  - RHABDOMYOLYSIS [None]
